FAERS Safety Report 8502074-5 (Version None)
Quarter: 2012Q3

REPORT INFORMATION
  Report Type: 
  Country: None (occurrence: None)
  Receive Date: 20120711
  Receipt Date: 20120622
  Transmission Date: 20120928
  Serious: No
  Sender: FDA-Public Use
  Company Number: CA-JNJFOC-20120516211

PATIENT
  Sex: Female
  Weight: 125 kg

DRUGS (2)
  1. REMICADE [Suspect]
     Route: 042
     Dates: start: 20120312
  2. REMICADE [Suspect]
     Indication: CROHN'S DISEASE
     Route: 042
     Dates: start: 20110101

REACTIONS (5)
  - FATIGUE [None]
  - COUGH [None]
  - SPUTUM DISCOLOURED [None]
  - LOWER RESPIRATORY TRACT INFECTION [None]
  - SPEECH DISORDER [None]
